FAERS Safety Report 6521978-6 (Version None)
Quarter: 2009Q4

REPORT INFORMATION
  Report Type: 
  Country: None (occurrence: None)
  Receive Date: 20091230
  Receipt Date: 20091222
  Transmission Date: 20100525
  Serious: Yes (Life-Threatening, Hospitalization)
  Sender: FDA-Public Use
  Company Number: JP-NAPPMUNDI-MAG-2009-0001170

PATIENT
  Sex: Female

DRUGS (9)
  1. OXYCODONE HCL [Suspect]
     Indication: CANCER PAIN
     Dosage: 5 MG, BID
     Route: 048
     Dates: start: 20091020, end: 20091207
  2. LEXIN                              /00052501/ [Concomitant]
     Indication: DRUG USE FOR UNKNOWN INDICATION
     Dosage: 200 MG, DAILY
     Route: 048
     Dates: start: 20090331
  3. LOXOPROFEN [Concomitant]
     Indication: CANCER PAIN
     Dosage: 120 MG, DAILY
     Route: 048
     Dates: start: 20090717
  4. PROTECADIN [Concomitant]
     Indication: GASTRITIS PROPHYLAXIS
     Dosage: 20 MG, DAILY
     Route: 048
     Dates: start: 20090728
  5. PANTOSIN [Concomitant]
     Indication: CONSTIPATION PROPHYLAXIS
     Dosage: 300 MG, DAILY
     Route: 048
     Dates: start: 20091020
  6. MAGMITT [Concomitant]
     Indication: CONSTIPATION PROPHYLAXIS
     Dosage: 990 MG, DAILY
     Route: 048
     Dates: start: 20091020
  7. CHEMOTHERAPEUTIONS [Concomitant]
     Indication: PANCREATIC CARCINOMA
     Dosage: UNK
     Dates: start: 20090415, end: 20091110
  8. CHEMOTHERAPEUTIONS [Concomitant]
     Indication: METASTASES TO LIVER
  9. CHEMOTHERAPEUTIONS [Concomitant]
     Indication: METASTASES TO PERITONEUM

REACTIONS (2)
  - CHOLANGITIS SUPPURATIVE [None]
  - DEVICE OCCLUSION [None]
